FAERS Safety Report 5692726-7 (Version None)
Quarter: 2008Q2

REPORT INFORMATION
  Report Type: 
  Country: None (occurrence: None)
  Receive Date: 20080401
  Receipt Date: 20080321
  Transmission Date: 20081010
  Serious: Yes (Other)
  Sender: FDA-Public Use
  Company Number: 46512

PATIENT

DRUGS (1)
  1. DEFEROXAMINE MESYLATE [Suspect]

REACTIONS (1)
  - MEDICATION ERROR [None]
